FAERS Safety Report 5126960-1 (Version None)
Quarter: 2006Q4

REPORT INFORMATION
  Report Type: 
  Country: None (occurrence: None)
  Receive Date: 20061013
  Receipt Date: 20061004
  Transmission Date: 20070319
  Serious: Yes (Hospitalization)
  Sender: FDA-Public Use
  Company Number: SE-JNJFOC-20060905529

PATIENT
  Sex: Female
  Weight: 59 kg

DRUGS (13)
  1. REMICADE [Suspect]
     Indication: RHEUMATOID ARTHRITIS
     Dosage: 4TH INFUSION
     Route: 042
  2. METHOTREXATE [Concomitant]
     Indication: RHEUMATOID ARTHRITIS
     Route: 065
  3. FOLACIN [Concomitant]
     Indication: RHEUMATOID ARTHRITIS
     Route: 065
  4. KALCIPOS D [Concomitant]
     Indication: OSTEOPOROSIS
     Route: 065
  5. THROMBYL [Concomitant]
     Indication: THROMBOSIS PROPHYLAXIS
     Route: 065
  6. FOSAMAX [Concomitant]
     Indication: HYPERTENSION
     Route: 065
  7. ESIDRIX [Concomitant]
     Indication: HYPERTENSION
     Route: 065
  8. ORUDIS RETARD [Concomitant]
     Indication: RHEUMATOID ARTHRITIS
     Route: 065
  9. RENITEC [Concomitant]
     Indication: HYPERTENSION
     Route: 065
  10. LANACRIST [Concomitant]
     Indication: PALPITATIONS
     Route: 065
  11. PRAVACHOL [Concomitant]
     Indication: HYPERLIPIDAEMIA
     Route: 065
  12. LANTUS [Concomitant]
     Route: 065
  13. HUMALOG [Concomitant]
     Route: 065

REACTIONS (2)
  - HYPERGLYCAEMIA [None]
  - INFECTION [None]
